FAERS Safety Report 7627982-9 (Version None)
Quarter: 2011Q3

REPORT INFORMATION
  Report Type: 
  Country: None (occurrence: None)
  Receive Date: 20110722
  Receipt Date: 20110707
  Transmission Date: 20111222
  Serious: Yes (Hospitalization, Other)
  Sender: FDA-Public Use
  Company Number: US-BIOGENIDEC-2010BI030812

PATIENT
  Age: 43 Year
  Sex: Male

DRUGS (2)
  1. AVONEX [Suspect]
     Route: 030
     Dates: start: 20030101
  2. AVONEX [Suspect]
     Indication: MULTIPLE SCLEROSIS
     Route: 030
     Dates: start: 19970301, end: 20030101

REACTIONS (5)
  - MYELOID LEUKAEMIA [None]
  - DIABETES MELLITUS [None]
  - MYOCARDIAL INFARCTION [None]
  - DRUG EFFECT DECREASED [None]
  - CARDIAC ARREST [None]
